FAERS Safety Report 11867662 (Version 2)
Quarter: 2016Q1

REPORT INFORMATION
  Report Type: Spontaneous
  Country: GB (occurrence: GB)
  Receive Date: 20151224
  Receipt Date: 20160120
  Transmission Date: 20160526
  Serious: Yes (Death, Hospitalization)
  Sender: FDA-Public Use
  Company Number: GB-JNJFOC-20151219445

PATIENT
  Age: 78 Year
  Sex: Male
  Weight: 55 kg

DRUGS (6)
  1. XARELTO [Suspect]
     Active Substance: RIVAROXABAN
     Indication: CHA2DS2-VASC ANNUAL STROKE RISK HIGH
     Route: 048
     Dates: start: 20140127, end: 20151124
  2. XARELTO [Suspect]
     Active Substance: RIVAROXABAN
     Indication: CEREBROVASCULAR ACCIDENT PROPHYLAXIS
     Route: 048
     Dates: start: 20140127, end: 20151124
  3. XARELTO [Suspect]
     Active Substance: RIVAROXABAN
     Indication: ATRIAL FIBRILLATION
     Route: 048
     Dates: start: 20140127, end: 20151124
  4. OMEPRAZOLE. [Concomitant]
     Active Substance: OMEPRAZOLE
     Route: 065
  5. FINASTERIDE. [Concomitant]
     Active Substance: FINASTERIDE
     Route: 065
  6. CO-BENELDOPA [Concomitant]
     Active Substance: BENSERAZIDE HYDROCHLORIDE\LEVODOPA
     Route: 065

REACTIONS (6)
  - Intraventricular haemorrhage [Fatal]
  - Dizziness [Unknown]
  - Urinary tract infection [Unknown]
  - Hydrocephalus [Fatal]
  - Dysarthria [Unknown]
  - Vomiting [Unknown]

NARRATIVE: CASE EVENT DATE: 20151009
